FAERS Safety Report 23275888 (Version 1)
Quarter: 2023Q4

REPORT INFORMATION
  Report Type: Spontaneous
  Country: IT (occurrence: IT)
  Receive Date: 20231208
  Receipt Date: 20231208
  Transmission Date: 20240109
  Serious: Yes (Hospitalization)
  Sender: FDA-Public Use
  Company Number: IT-DOCGEN-2307861

PATIENT
  Age: 60 Year
  Sex: Male

DRUGS (5)
  1. OLANZAPINE [Suspect]
     Active Substance: OLANZAPINE
     Indication: Depressive symptom
     Dosage: DAILY DOSE: 20 MILLIGRAM
     Dates: start: 2002
  2. CITALOPRAM [Suspect]
     Active Substance: CITALOPRAM HYDROBROMIDE
     Indication: Depressive symptom
     Dosage: DAILY DOSE: 200 MILLIGRAM
     Dates: start: 2002
  3. CITALOPRAM [Suspect]
     Active Substance: CITALOPRAM HYDROBROMIDE
     Indication: Hallucination, auditory
     Dosage: DAILY DOSE: 200 MILLIGRAM
     Dates: start: 2002
  4. HALOPERIDOL [Concomitant]
     Active Substance: HALOPERIDOL
     Indication: Treatment noncompliance
  5. HALOPERIDOL [Concomitant]
     Active Substance: HALOPERIDOL
     Indication: Hallucination, auditory

REACTIONS (1)
  - Therapy partial responder [Unknown]
